FAERS Safety Report 9713791 (Version 1)
Quarter: 2013Q4

REPORT INFORMATION
  Report Type: Spontaneous
  Country: US (occurrence: None)
  Receive Date: 20131122
  Receipt Date: 20131122
  Transmission Date: 20140711
  Serious: Yes (Hospitalization)
  Sender: FDA-Public Use
  Company Number: SYM-2013-13066

PATIENT
  Age: 71 Year
  Sex: Female

DRUGS (1)
  1. XENAZINE (TETRABENAZINE) (12.5 MILLIGRAM, TABLET) (TETRABENAZINE) [Suspect]
     Indication: CHOREA
     Route: 048
     Dates: start: 20130121

REACTIONS (4)
  - Headache [None]
  - Cerebrovascular accident [None]
  - Dysarthria [None]
  - Glucose tolerance impaired [None]
